FAERS Safety Report 12655153 (Version 2)
Quarter: 2016Q3

REPORT INFORMATION
  Report Type: Spontaneous
  Country: CN (occurrence: CN)
  Receive Date: 20160816
  Receipt Date: 20160829
  Transmission Date: 20161109
  Serious: Yes (Other)
  Sender: FDA-Public Use
  Company Number: CN-JNJFOC-20160809941

PATIENT
  Age: 27 Year
  Sex: Male

DRUGS (1)
  1. SPORANOX [Suspect]
     Active Substance: ITRACONAZOLE
     Indication: ONYCHOMYCOSIS
     Dosage: USED SPORANOX FOR ONE WEEK, THEN STOPPED IT FOR ONE WEEK AS ONE COURSE. USED 3 COURSES (TOTAL)
     Route: 048
     Dates: start: 2013

REACTIONS (2)
  - Dermatophytosis of nail [Unknown]
  - Limb crushing injury [Unknown]

NARRATIVE: CASE EVENT DATE: 2015
